FAERS Safety Report 15950398 (Version 2)
Quarter: 2019Q1

REPORT INFORMATION
  Report Type: Spontaneous
  Country: US (occurrence: US)
  Receive Date: 20190211
  Receipt Date: 20190303
  Transmission Date: 20190417
  Serious: No
  Sender: FDA-Public Use
  Company Number: US-JNJFOC-20190128354

PATIENT
  Age: 46 Year
  Sex: Female
  Weight: 58.06 kg

DRUGS (3)
  1. TOPAMAX [Suspect]
     Active Substance: TOPIRAMATE
     Indication: MIGRAINE PROPHYLAXIS
     Route: 048
     Dates: start: 1999
  2. TOPAMAX [Suspect]
     Active Substance: TOPIRAMATE
     Indication: SEIZURE
     Route: 048
     Dates: start: 1999
  3. TOPAMAX [Suspect]
     Active Substance: TOPIRAMATE
     Indication: PAIN
     Route: 048
     Dates: start: 1999

REACTIONS (8)
  - Drug ineffective [Unknown]
  - Product odour abnormal [Unknown]
  - Depression [Recovered/Resolved]
  - Musculoskeletal pain [Recovered/Resolved]
  - Heart rate increased [Recovered/Resolved]
  - Off label use [Unknown]
  - Drug hypersensitivity [Unknown]
  - Incorrect dose administered [Unknown]

NARRATIVE: CASE EVENT DATE: 20181221
